FAERS Safety Report 7342726-6 (Version None)
Quarter: 2011Q1

REPORT INFORMATION
  Report Type: 
  Country: None (occurrence: None)
  Receive Date: 20110301
  Receipt Date: 20110215
  Transmission Date: 20110831
  Serious: Yes (Other)
  Sender: FDA-Public Use
  Company Number: 2011MA001539

PATIENT
  Age: 44 Year
  Sex: Male

DRUGS (3)
  1. THIAMINE [Concomitant]
  2. FEVERALL [Suspect]
     Indication: PRODUCT USED FOR UNKNOWN INDICATION
     Dosage: PO
     Route: 048
     Dates: start: 20110204
  3. SALBUTAMOL [Concomitant]

REACTIONS (1)
  - DIZZINESS [None]
